FAERS Safety Report 8306395-0 (Version None)
Quarter: 2012Q2

REPORT INFORMATION
  Report Type: 
  Country: None (occurrence: None)
  Receive Date: 20120423
  Receipt Date: 20120417
  Transmission Date: 20120825
  Serious: Yes (Hospitalization, Other)
  Sender: FDA-Public Use
  Company Number: US-ELI_LILLY_AND_COMPANY-US201204006571

PATIENT
  Sex: Female

DRUGS (3)
  1. HUMALOG [Suspect]
     Dosage: UNK UNK, PRN
  2. LANTUS [Concomitant]
     Dosage: UNK
  3. HUMALOG [Suspect]
     Indication: DIABETES MELLITUS
     Dosage: UNK UNK, PRN

REACTIONS (6)
  - RENAL DISORDER [None]
  - DRUG INEFFECTIVE [None]
  - EYE OPERATION [None]
  - PNEUMONIA [None]
  - BLOOD GLUCOSE INCREASED [None]
  - VISUAL IMPAIRMENT [None]
